FAERS Safety Report 12181241 (Version 1)
Quarter: 2016Q1

REPORT INFORMATION
  Report Type: Spontaneous
  Country: US (occurrence: US)
  Receive Date: 20160315
  Receipt Date: 20160315
  Transmission Date: 20160526
  Serious: No
  Sender: FDA-Public Use
  Company Number: US-ALLERGAN-1527198US

PATIENT
  Age: 93 Year
  Sex: Female

DRUGS (4)
  1. HYDROCHLOROTHIAZIDE. [Concomitant]
     Active Substance: HYDROCHLOROTHIAZIDE
     Indication: HYPERTENSION
  2. VIBERZI [Suspect]
     Active Substance: ELUXADOLINE
     Indication: STRESS
     Dosage: 100 MG, BID
     Dates: start: 20151213, end: 20151229
  3. ARMOUR THYROID [Concomitant]
     Active Substance: THYROID, PORCINE
     Indication: THYROIDECTOMY
  4. NORVASC [Concomitant]
     Active Substance: AMLODIPINE BESYLATE
     Indication: HYPERTENSION

REACTIONS (9)
  - Pain [Recovered/Resolved]
  - Musculoskeletal pain [Not Recovered/Not Resolved]
  - Glossodynia [Recovered/Resolved]
  - Hiccups [Recovered/Resolved]
  - Burning sensation [Recovered/Resolved]
  - Tongue ulceration [Recovered/Resolved]
  - Dyspepsia [Recovered/Resolved]
  - Off label use [Unknown]
  - Abdominal pain upper [Not Recovered/Not Resolved]

NARRATIVE: CASE EVENT DATE: 201512
